FAERS Safety Report 22245496 (Version 1)
Quarter: 2023Q2

REPORT INFORMATION
  Report Type: Spontaneous
  Country: US (occurrence: US)
  Receive Date: 20230424
  Receipt Date: 20230424
  Transmission Date: 20230721
  Serious: Yes (Hospitalization, Other)
  Sender: FDA-Public Use
  Company Number: US-Indicus Pharma-000943

PATIENT
  Age: 59 Year
  Sex: Female

DRUGS (13)
  1. ACETAZOLAMIDE [Suspect]
     Active Substance: ACETAZOLAMIDE
     Indication: Ocular hypertension
     Dosage: AT 6 PM
     Route: 048
  2. OFLOXACIN [Concomitant]
     Active Substance: OFLOXACIN
  3. KETOROLAC [Concomitant]
     Active Substance: KETOROLAC TROMETHAMINE
  4. PREDNISOLONE [Concomitant]
     Active Substance: PREDNISOLONE
  5. ATORVASTATIN [Concomitant]
     Active Substance: ATORVASTATIN
  6. FERROUS SULFATE [Concomitant]
     Active Substance: FERROUS SULFATE
  7. INSULIN LISPRO [Concomitant]
     Active Substance: INSULIN LISPRO
     Indication: Type 2 diabetes mellitus
  8. INSULIN GLARGINE [Concomitant]
     Active Substance: INSULIN GLARGINE
     Indication: Type 2 diabetes mellitus
  9. LOSARTAN AND HYDROCHLOROTHIAZIDE [Concomitant]
     Active Substance: HYDROCHLOROTHIAZIDE\LOSARTAN POTASSIUM
     Indication: Malignant hypertension
  10. METFORMIN [Concomitant]
     Active Substance: METFORMIN HYDROCHLORIDE
     Indication: Type 2 diabetes mellitus
  11. OMEPRAZOLE [Concomitant]
     Active Substance: OMEPRAZOLE
  12. LIRAGLUTIDE [Concomitant]
     Active Substance: LIRAGLUTIDE
  13. VITAMIN B2 [Concomitant]
     Active Substance: RIBOFLAVIN

REACTIONS (1)
  - Non-cardiogenic pulmonary oedema [Recovered/Resolved]
